FAERS Safety Report 8550593 (Version 2)
Quarter: 2013Q2

REPORT INFORMATION
  Report Type: Spontaneous
  Country: US (occurrence: US)
  Receive Date: 20120508
  Receipt Date: 20130419
  Transmission Date: 20140414
  Serious: No
  Sender: FDA-Public Use
  Company Number: US-BIOGENIDEC-2012BI015100

PATIENT
  Sex: Female

DRUGS (7)
  1. TYSABRI [Suspect]
     Indication: MULTIPLE SCLEROSIS
     Route: 042
     Dates: start: 20071108, end: 20120228
  2. TYSABRI [Suspect]
     Indication: MULTIPLE SCLEROSIS
     Route: 042
     Dates: start: 20120620
  3. BETASERON [Concomitant]
     Indication: PRODUCT USED FOR UNKNOWN INDICATION
  4. WELLBUTRIN [Concomitant]
     Indication: DEPRESSION
  5. CYMBALTA [Concomitant]
     Indication: DEPRESSION
  6. CLONOPIN [Concomitant]
     Indication: ANXIETY
  7. BUSPAR [Concomitant]
     Indication: ANXIETY

REACTIONS (15)
  - Visual impairment [Not Recovered/Not Resolved]
  - Band sensation [Not Recovered/Not Resolved]
  - Pain [Unknown]
  - Fibromyalgia [Not Recovered/Not Resolved]
  - Autonomic nervous system imbalance [Not Recovered/Not Resolved]
  - Somnolence [Unknown]
  - Loss of control of legs [Unknown]
  - Balance disorder [Unknown]
  - Cognitive disorder [Unknown]
  - Malaise [Not Recovered/Not Resolved]
  - Pyrexia [Recovered/Resolved]
  - Infection [Recovered/Resolved]
  - Herpes zoster [Unknown]
  - Multiple sclerosis relapse [Recovered/Resolved]
  - Sinusitis [Unknown]
